FAERS Safety Report 7768037-2 (Version None)
Quarter: 2011Q3

REPORT INFORMATION
  Report Type: 
  Country: None (occurrence: None)
  Receive Date: 20110922
  Receipt Date: 20110110
  Transmission Date: 20111222
  Serious: Yes (Other)
  Sender: FDA-Public Use
  Company Number: US-ASTRAZENECA-2011SE01370

PATIENT
  Age: 39 Year
  Sex: Female
  Weight: 68 kg

DRUGS (4)
  1. SEROQUEL XR [Suspect]
     Indication: ANTIDEPRESSANT THERAPY
     Route: 048
     Dates: start: 20101101
  2. OXYCONTIN [Concomitant]
  3. XANAX [Concomitant]
  4. CYMBALTA [Concomitant]

REACTIONS (5)
  - THERAPEUTIC RESPONSE UNEXPECTED [None]
  - SUICIDAL IDEATION [None]
  - DRUG DOSE OMISSION [None]
  - FEELING OF RELAXATION [None]
  - TREMOR [None]
